FAERS Safety Report 9445696 (Version 5)
Quarter: 2014Q1

REPORT INFORMATION
  Report Type: Spontaneous
  Country: US (occurrence: US)
  Receive Date: 20130807
  Receipt Date: 20140204
  Transmission Date: 20141002
  Serious: Yes (Other)
  Sender: FDA-Public Use
  Company Number: US-PFIZER INC-2013228780

PATIENT
  Sex: Female

DRUGS (2)
  1. LYRICA [Suspect]
     Indication: PAIN
     Dosage: 75 MG, 2X/DAY
     Route: 048
  2. WELLBUTRIN [Concomitant]
     Indication: DEPRESSION
     Dosage: 100 MG, 3X/DAY
     Route: 048

REACTIONS (12)
  - Road traffic accident [Recovered/Resolved]
  - Memory impairment [Unknown]
  - Confusional state [Unknown]
  - Disturbance in attention [Unknown]
  - Hip fracture [Unknown]
  - Pelvic fracture [Unknown]
  - Fall [Recovered/Resolved]
  - Neck pain [Unknown]
  - Musculoskeletal pain [Unknown]
  - Pain [Unknown]
  - Gait disturbance [Unknown]
  - Injury [Unknown]
